FAERS Safety Report 10153952 (Version 2)
Quarter: 2014Q2

REPORT INFORMATION
  Report Type: Spontaneous
  Country: US (occurrence: US)
  Receive Date: 20140506
  Receipt Date: 20140508
  Transmission Date: 20141212
  Serious: No
  Sender: FDA-Public Use
  Company Number: US-SHIRE-US201401595

PATIENT
  Sex: Female

DRUGS (2)
  1. LIALDA [Suspect]
     Indication: CROHN^S DISEASE
     Dosage: UNK UNK, UNKNOWN
     Route: 048
  2. LIALDA [Suspect]
     Indication: COLITIS ULCERATIVE

REACTIONS (2)
  - Adverse drug reaction [Unknown]
  - Colitis ulcerative [Unknown]
